FAERS Safety Report 5928465-4 (Version None)
Quarter: 2008Q4

REPORT INFORMATION
  Report Type: 
  Country: None (occurrence: None)
  Receive Date: 20081023
  Receipt Date: 20081015
  Transmission Date: 20090506
  Serious: Yes (Other)
  Sender: FDA-Public Use
  Company Number: GB-BAXTER-2008BH011010

PATIENT
  Age: 42 Year
  Sex: Male

DRUGS (3)
  1. CYCLOPHOSPHAMIDE [Suspect]
     Indication: EYE INFECTION
     Dosage: DOSE UNIT:UNKNOWN
     Route: 065
     Dates: start: 20060401
  2. CYCLOSPORINE [Suspect]
     Indication: EYE INFECTION
     Dosage: DOSE UNIT:UNKNOWN
     Route: 065
     Dates: start: 20060401
  3. DAPSONE [Suspect]
     Indication: EYE INFECTION
     Dosage: DOSE UNIT:UNKNOWN
     Route: 065
     Dates: start: 20060401

REACTIONS (1)
  - STAPHYLOCOCCAL INFECTION [None]
